FAERS Safety Report 25503573 (Version 1)
Quarter: 2025Q3

REPORT INFORMATION
  Report Type: Spontaneous
  Country: US (occurrence: US)
  Receive Date: 20250702
  Receipt Date: 20250702
  Transmission Date: 20251021
  Serious: Yes (Other)
  Sender: CIPLA
  Company Number: US-CIPLA LTD.-2025US07619

PATIENT

DRUGS (16)
  1. SERTRALINE [Interacting]
     Active Substance: SERTRALINE HYDROCHLORIDE
     Indication: Anxiety
     Route: 065
  2. SERTRALINE [Interacting]
     Active Substance: SERTRALINE HYDROCHLORIDE
     Route: 065
  3. SERTRALINE [Interacting]
     Active Substance: SERTRALINE HYDROCHLORIDE
     Route: 065
  4. CLONIDINE [Interacting]
     Active Substance: CLONIDINE
     Indication: Anxiety
     Dosage: 0.1 MG AT ONCE A DAY (DINNER TIME)
     Route: 065
  5. CLONIDINE [Interacting]
     Active Substance: CLONIDINE
     Dosage: 0.05 MG TID
     Route: 065
  6. RISPERIDONE [Interacting]
     Active Substance: RISPERIDONE
     Indication: Anxiety
     Route: 065
  7. RISPERIDONE [Interacting]
     Active Substance: RISPERIDONE
     Route: 065
  8. RISPERIDONE [Interacting]
     Active Substance: RISPERIDONE
     Dosage: 1 MILLIGRAM, BID
     Route: 065
  9. RISPERIDONE [Interacting]
     Active Substance: RISPERIDONE
     Dosage: 0.25 MILLIGRAM, QD
     Route: 065
  10. MODAFINIL [Interacting]
     Active Substance: MODAFINIL
     Indication: Somnolence
     Dosage: 100 MILLIGRAM, QD (100 MG IN AM )
     Route: 065
  11. CLONAZEPAM [Interacting]
     Active Substance: CLONAZEPAM
     Indication: Anxiety
     Route: 065
  12. CLONAZEPAM [Interacting]
     Active Substance: CLONAZEPAM
     Dosage: 0.5 MG TWICE DAILY
     Route: 065
  13. VALPROATE SODIUM [Interacting]
     Active Substance: VALPROATE SODIUM
     Indication: Aggression
     Dosage: 625 MG TWICE DAILY
     Route: 065
  14. VALPROATE SODIUM [Interacting]
     Active Substance: VALPROATE SODIUM
     Indication: Euphoric mood
     Dosage: 500 MILLIGRAM, BID
     Route: 065
  15. LITHIUM [Concomitant]
     Active Substance: LITHIUM
     Indication: Aggression
     Dosage: 750 MG DAILY
     Route: 065
  16. LITHIUM [Concomitant]
     Active Substance: LITHIUM
     Indication: Euphoric mood
     Dosage: 600 MG DAILY (DECREASED)
     Route: 065

REACTIONS (4)
  - Affective disorder [Recovering/Resolving]
  - Behaviour disorder [Recovering/Resolving]
  - Condition aggravated [Recovering/Resolving]
  - Drug interaction [Unknown]
